FAERS Safety Report 5550776-5 (Version None)
Quarter: 2007Q4

REPORT INFORMATION
  Report Type: 
  Country: None (occurrence: None)
  Receive Date: 20071212
  Receipt Date: 20071205
  Transmission Date: 20080405
  Serious: Yes (Other)
  Sender: FDA-Public Use
  Company Number: US-JNJFOC-20071201760

PATIENT
  Age: 73 Year
  Sex: Female
  Weight: 72.12 kg

DRUGS (3)
  1. EXTRA STRENGTH TYLENOL [Suspect]
  2. EXTRA STRENGTH TYLENOL [Suspect]
     Indication: PROCEDURAL PAIN
     Dosage: 1000MG, TIMES 2 DOSES, 20-30 MINUTES APART
  3. ANACIN-3 W/ CODEINE #3 [Concomitant]
     Indication: PAIN
     Dosage: ^YEARS^

REACTIONS (2)
  - INCORRECT DOSE ADMINISTERED [None]
  - TACHYCARDIA [None]
